FAERS Safety Report 6666910-X (Version None)
Quarter: 2010Q1

REPORT INFORMATION
  Report Type: 
  Country: None (occurrence: None)
  Receive Date: 20100331
  Receipt Date: 20100319
  Transmission Date: 20100710
  Serious: Yes (Other)
  Sender: FDA-Public Use
  Company Number: TNZBE200800155

PATIENT
  Age: 30 Year
  Sex: Female
  Weight: 79 kg

DRUGS (2)
  1. INNOHEP [Suspect]
     Indication: THROMBOSIS PROPHYLAXIS
     Dosage: 14000 IU (14000 I1, 1 IN 1 D)
     Dates: start: 20070201, end: 20070501
  2. SINTROM (ACENOCOMAROL) [Concomitant]

REACTIONS (2)
  - ABORTION SPONTANEOUS [None]
  - DRUG EXPOSURE DURING PREGNANCY [None]
